FAERS Safety Report 4464702-3 (Version None)
Quarter: 2004Q3

REPORT INFORMATION
  Report Type: 
  Country: None (occurrence: None)
  Receive Date: 20040929
  Receipt Date: 20040915
  Transmission Date: 20050211
  Serious: Yes (Other)
  Sender: FDA-Public Use
  Company Number: USA021023100

PATIENT
  Age: 78 Year
  Sex: Male
  Weight: 89 kg

DRUGS (7)
  1. HUMULIN N [Suspect]
     Indication: DIABETES MELLITUS
     Dosage: 15 U/1 DAY
     Dates: start: 20020801
  2. HUMALOG [Suspect]
     Indication: DIABETES MELLITUS
     Dosage: 2 U/1 DAY
     Dates: start: 20021029
  3. HUMALOG [Suspect]
     Dosage: 15 U DAY
     Dates: start: 20040909
  4. GLUCOPHAGE [Concomitant]
  5. AMARYL [Concomitant]
  6. ACTRAPID [Concomitant]
  7. INNOLET (INSULIN) [Concomitant]

REACTIONS (6)
  - ABNORMAL SENSATION IN EYE [None]
  - BLOOD GLUCOSE DECREASED [None]
  - BLOOD GLUCOSE INCREASED [None]
  - EYE DISORDER [None]
  - EYE HAEMORRHAGE [None]
  - MEDICAL DEVICE COMPLICATION [None]
